FAERS Safety Report 6169343-8 (Version None)
Quarter: 2009Q2

REPORT INFORMATION
  Report Type: 
  Country: None (occurrence: None)
  Receive Date: 20090424
  Receipt Date: 20090414
  Transmission Date: 20091009
  Serious: Yes (Other)
  Sender: FDA-Public Use
  Company Number: 1000005655

PATIENT
  Age: 34 Year
  Sex: Female

DRUGS (19)
  1. ESCITALOPRAM [Suspect]
     Dosage: 15 MG (15 MG, 1 IN 1 D), ORAL
     Route: 048
     Dates: start: 20080122, end: 20080709
  2. ESCITALOPRAM [Suspect]
     Dosage: 10 MG (10 MG, 1 IN 1 D), ORAL
     Route: 048
     Dates: start: 20080710, end: 20080716
  3. SEROQUEL [Suspect]
     Dosage: 650 MG (650 MG, 1 IN 1 D), ORAL; ORAL
     Route: 048
     Dates: start: 20080510, end: 20080526
  4. SEROQUEL [Suspect]
     Dosage: 650 MG (650 MG, 1 IN 1 D), ORAL; ORAL
     Route: 048
     Dates: start: 20080527, end: 20080604
  5. SEROQUEL [Suspect]
     Dosage: SEE IMAGE
     Route: 048
     Dates: start: 20080312, end: 20080312
  6. SEROQUEL [Suspect]
     Dosage: SEE IMAGE
     Route: 048
     Dates: start: 20080313, end: 20080320
  7. SEROQUEL [Suspect]
     Dosage: SEE IMAGE
     Route: 048
     Dates: start: 20080321, end: 20080328
  8. SEROQUEL [Suspect]
     Dosage: SEE IMAGE
     Route: 048
     Dates: start: 20080329, end: 20080330
  9. SEROQUEL [Suspect]
     Dosage: SEE IMAGE
     Route: 048
     Dates: start: 20080331, end: 20080402
  10. SEROQUEL [Suspect]
     Dosage: SEE IMAGE
     Route: 048
     Dates: start: 20080403, end: 20080410
  11. SEROQUEL [Suspect]
     Dosage: SEE IMAGE
     Route: 048
     Dates: start: 20080411, end: 20080509
  12. ZYPREXA [Suspect]
     Dosage: 20 MG (20 MG, 1 IN 1 D), ORAL
     Route: 048
  13. ZYPREXA [Suspect]
     Dosage: (1 IN 1 D), ORAL
     Route: 048
  14. AKINETON [Suspect]
     Dosage: 2 MG (2 MG, 1 IN 1 D), ORAL
     Route: 048
  15. ZOPICLON [Suspect]
  16. PANTOZOL [Concomitant]
  17. DIAZEPAM [Concomitant]
  18. LEVOTHYROXINE SODIUM [Concomitant]
  19. OSTEO PLUS [Concomitant]

REACTIONS (12)
  - ANOREXIA [None]
  - ARRHYTHMIA [None]
  - ATRIAL FIBRILLATION [None]
  - CACHEXIA [None]
  - CARDIAC FIBRILLATION [None]
  - PERSONALITY CHANGE [None]
  - RESTLESSNESS [None]
  - SINUS BRADYCARDIA [None]
  - SINUS TACHYCARDIA [None]
  - SUPRAVENTRICULAR EXTRASYSTOLES [None]
  - VENTRICULAR EXTRASYSTOLES [None]
  - WEIGHT DECREASED [None]
